FAERS Safety Report 15626735 (Version 1)
Quarter: 2018Q4

REPORT INFORMATION
  Report Type: Spontaneous
  Country: FI (occurrence: FI)
  Receive Date: 20181116
  Receipt Date: 20181116
  Transmission Date: 20190205
  Serious: Yes (Life-Threatening)
  Sender: FDA-Public Use
  Company Number: FI-PFIZER INC-2018467048

PATIENT
  Age: 74 Year
  Sex: Male

DRUGS (12)
  1. PRIMASPAN [Concomitant]
     Active Substance: ASPIRIN
     Dosage: 100 MG, DAILY
     Route: 048
  2. CALCICHEW D3 APPELSIINI [Concomitant]
     Dosage: 4 DF, DAILY
     Route: 048
  3. METFORMIN ACTAVIS [Concomitant]
     Active Substance: METFORMIN HYDROCHLORIDE
     Dosage: 1000 MG, DAILY
     Route: 048
  4. DUODART [Concomitant]
     Active Substance: DUTASTERIDE\TAMSULOSIN
     Dosage: 1 DF, DAILY
     Route: 048
  5. BISOPROLOL RATIOPHARM [Concomitant]
     Active Substance: BISOPROLOL
     Dosage: 10 MG, DAILY
     Route: 048
  6. KALEORID [Concomitant]
     Active Substance: POTASSIUM CHLORIDE
     Dosage: 2 G, DAILY
     Route: 048
  7. KEPPRA [Concomitant]
     Active Substance: LEVETIRACETAM
     Dosage: 1000 MG, DAILY
     Route: 048
  8. PRATSIOL [Concomitant]
     Dosage: 2 MG, DAILY
     Route: 048
  9. AMLODIPIN ORION [Concomitant]
     Dosage: 10 MG, DAILY
     Route: 048
  10. NITROSID [Concomitant]
     Dosage: 10 MG, DAILY
     Route: 048
  11. SUTENT [Suspect]
     Active Substance: SUNITINIB MALATE
     Indication: RENAL CANCER
     Dosage: 37.5 MG, DAILY
     Route: 048
     Dates: start: 20170707, end: 20180918
  12. SIMVASTATIN RATIOPHARM [Concomitant]
     Active Substance: SIMVASTATIN
     Dosage: 40 MG, DAILY
     Route: 048

REACTIONS (9)
  - Haemoglobin decreased [Recovering/Resolving]
  - Posterior reversible encephalopathy syndrome [Recovering/Resolving]
  - Blood creatinine increased [Recovering/Resolving]
  - C-reactive protein increased [Recovering/Resolving]
  - Albumin urine present [Recovering/Resolving]
  - Cerebral microhaemorrhage [Recovering/Resolving]
  - Hypertension [Recovering/Resolving]
  - Blood bilirubin abnormal [Recovering/Resolving]
  - Pancytopenia [Recovering/Resolving]

NARRATIVE: CASE EVENT DATE: 20180918
